FAERS Safety Report 4262973-X (Version None)
Quarter: 2004Q1

REPORT INFORMATION
  Report Type: 
  Country: None (occurrence: None)
  Receive Date: 20040102
  Receipt Date: 20040102
  Transmission Date: 20041129
  Serious: Yes (Other)
  Sender: FDA-Public Use
  Company Number: None

PATIENT
  Age: 39 Year
  Sex: Male
  Weight: 79.3795 kg

DRUGS (2)
  1. CIPRO [Suspect]
     Dosage: 10 DAYS
  2. DOXYCHEL [Suspect]
     Dosage: 100 TABS

REACTIONS (3)
  - ABDOMINAL PAIN UPPER [None]
  - DIARRHOEA [None]
  - FREQUENT BOWEL MOVEMENTS [None]
